FAERS Safety Report 5514955-5 (Version None)
Quarter: 2007Q4

REPORT INFORMATION
  Report Type: 
  Country: None (occurrence: None)
  Receive Date: 20071113
  Receipt Date: 20061019
  Transmission Date: 20080405
  Serious: No
  Sender: FDA-Public Use
  Company Number: A0624247A

PATIENT
  Age: 76 Year
  Sex: Male

DRUGS (4)
  1. COREG [Suspect]
     Dosage: 9.375MG TWICE PER DAY
     Route: 048
     Dates: start: 20050921
  2. LISINOPRIL [Concomitant]
  3. COUMADIN [Concomitant]
  4. SIMVASTATIN [Concomitant]

REACTIONS (1)
  - DYSPNOEA [None]
